FAERS Safety Report 8292802-9 (Version None)
Quarter: 2012Q2

REPORT INFORMATION
  Report Type: 
  Country: None (occurrence: None)
  Receive Date: 20120417
  Receipt Date: 20120119
  Transmission Date: 20120825
  Serious: Yes (Other)
  Sender: FDA-Public Use
  Company Number: US-ASTRAZENECA-2011SE22474

PATIENT
  Age: 39 Year
  Sex: Female

DRUGS (1)
  1. NEXIUM [Suspect]
     Route: 048

REACTIONS (4)
  - FOOT FRACTURE [None]
  - DRUG DOSE OMISSION [None]
  - HYPERCHLORHYDRIA [None]
  - DYSPEPSIA [None]
